FAERS Safety Report 10245698 (Version 2)
Quarter: 2014Q2

REPORT INFORMATION
  Report Type: Spontaneous
  Country: FI (occurrence: FI)
  Receive Date: 20140619
  Receipt Date: 20140619
  Transmission Date: 20141212
  Serious: Yes (Hospitalization)
  Sender: FDA-Public Use
  Company Number: FI-ROCHE-1418517

PATIENT
  Sex: Female

DRUGS (3)
  1. ROACTEMRA [Suspect]
     Indication: POLYARTHRITIS
     Route: 065
  2. PANACOD [Concomitant]
     Indication: ANALGESIC THERAPY
     Route: 065
  3. NORSPAN PATCH [Concomitant]
     Indication: ANALGESIC THERAPY
     Route: 062

REACTIONS (9)
  - Device failure [Unknown]
  - Arthritis infective [Unknown]
  - Pain [Unknown]
  - Abasia [Unknown]
  - Joint swelling [Unknown]
  - Gait disturbance [Unknown]
  - Bone erosion [Unknown]
  - Arthritis infective [Unknown]
  - Infective tenosynovitis [Unknown]
